FAERS Safety Report 7915794-8 (Version None)
Quarter: 2011Q4

REPORT INFORMATION
  Report Type: 
  Country: None (occurrence: None)
  Receive Date: 20111115
  Receipt Date: 20111109
  Transmission Date: 20120403
  Serious: Yes (Hospitalization, Other)
  Sender: FDA-Public Use
  Company Number: PHHY2011EC099148

PATIENT
  Sex: Female

DRUGS (1)
  1. ZOLEDRONOC ACID [Suspect]
     Indication: OSTEOPOROSIS
     Dosage: 5 MG/100 ML
     Route: 042
     Dates: start: 20100930

REACTIONS (5)
  - HELICOBACTER INFECTION [None]
  - PANCREATITIS [None]
  - RENAL DISORDER [None]
  - RENAL CYST [None]
  - BILIARY DILATATION [None]
